FAERS Safety Report 25352681 (Version 1)
Quarter: 2025Q2

REPORT INFORMATION
  Report Type: Spontaneous
  Country: US (occurrence: US)
  Receive Date: 20250523
  Receipt Date: 20250523
  Transmission Date: 20250717
  Serious: No
  Sender: SPROUT PHARMACEUTICALS
  Company Number: US-SPROUT PHARMACEUTICALS, INC.-2025SP000061

PATIENT
  Sex: Female

DRUGS (1)
  1. ADDYI [Suspect]
     Active Substance: FLIBANSERIN
     Indication: Product used for unknown indication
     Route: 048
     Dates: start: 20250202

REACTIONS (2)
  - Malaise [Unknown]
  - Migraine [Unknown]

NARRATIVE: CASE EVENT DATE: 20250101
